FAERS Safety Report 7358414-6 (Version None)
Quarter: 2011Q1

REPORT INFORMATION
  Report Type: 
  Country: None (occurrence: None)
  Receive Date: 20110317
  Receipt Date: 20110307
  Transmission Date: 20110831
  Serious: Yes (Hospitalization)
  Sender: FDA-Public Use
  Company Number: US-AMGEN-USASP2011012789

PATIENT
  Age: 59 Year
  Sex: Male

DRUGS (18)
  1. EPOGEN [Suspect]
     Dosage: 8000 IU, QWK
     Route: 042
  2. ALLOPURINOL [Concomitant]
  3. SIMVASTATIN [Concomitant]
  4. HECTOROL [Concomitant]
     Dosage: 2 A?G, 3 TIMES/WK
  5. FOLATE [Concomitant]
     Dosage: UNK
  6. EPOGEN [Suspect]
     Indication: HAEMODIALYSIS
     Dosage: UNK
     Dates: start: 20080514
  7. LASIX [Concomitant]
  8. ASPIRIN [Concomitant]
  9. AMLODIPINE [Concomitant]
     Dosage: 10 MG, 4 TIMES/WK
  10. PROLIXIN                           /00000602/ [Concomitant]
     Route: 030
  11. DOCUSATE [Concomitant]
     Dosage: 1 MG, PRN
  12. NEPHROCAPS [Concomitant]
     Dosage: UNK
  13. CALCICHEW [Concomitant]
  14. RENAGEL                            /01459901/ [Concomitant]
  15. MIRALAX [Concomitant]
  16. LACTULOSE [Concomitant]
     Dosage: 1 ML, PRN
  17. ATENOLOL [Concomitant]
  18. SEROQUEL [Concomitant]

REACTIONS (2)
  - TREATMENT NONCOMPLIANCE [None]
  - SCHIZOPHRENIA, PARANOID TYPE [None]
